FAERS Safety Report 6380330-7 (Version None)
Quarter: 2009Q3

REPORT INFORMATION
  Report Type: 
  Country: None (occurrence: None)
  Receive Date: 20090924
  Receipt Date: 20090911
  Transmission Date: 20100115
  Serious: Yes (Hospitalization)
  Sender: FDA-Public Use
  Company Number: TCI2009A03707

PATIENT
  Age: 87 Year
  Sex: Male

DRUGS (5)
  1. ACTOS [Suspect]
     Indication: DIABETES MELLITUS
     Dosage: 7.5 MG (7.5 MG, 1D) PER ORAL; 15 MG (15 MG, 1 D) PER ORAL
     Route: 048
     Dates: start: 20090424, end: 20090501
  2. ACTOS [Suspect]
     Indication: DIABETES MELLITUS
     Dosage: 7.5 MG (7.5 MG, 1D) PER ORAL; 15 MG (15 MG, 1 D) PER ORAL
     Route: 048
     Dates: start: 20090501, end: 20090809
  3. BASEN (VOGLIBOSE) [Concomitant]
  4. GLYBURIDE [Concomitant]
  5. ASPIRIN [Concomitant]

REACTIONS (1)
  - INTERSTITIAL LUNG DISEASE [None]
